FAERS Safety Report 6406776-6 (Version None)
Quarter: 2009Q4

REPORT INFORMATION
  Report Type: 
  Country: None (occurrence: None)
  Receive Date: 20091020
  Receipt Date: 20091009
  Transmission Date: 20100525
  Serious: Yes (Hospitalization)
  Sender: FDA-Public Use
  Company Number: JP-PFIZER INC-2009236306

PATIENT
  Age: 86 Year

DRUGS (10)
  1. CELECOXIB [Suspect]
     Indication: COMPRESSION FRACTURE
     Dosage: 100 MG, 2X/DAY
     Route: 048
     Dates: start: 20090611, end: 20090622
  2. EVISTA [Concomitant]
     Dosage: UNK
     Route: 048
     Dates: start: 20090620, end: 20090622
  3. POLAPREZINC [Concomitant]
     Dosage: UNK
     Route: 048
     Dates: start: 20090611, end: 20090622
  4. ASPIRIN [Concomitant]
     Route: 048
  5. LOSARTAN POTASSIUM [Concomitant]
     Dosage: UNK
     Route: 048
  6. TAKEPRON [Concomitant]
     Route: 048
  7. ACTOS [Concomitant]
     Route: 048
  8. CRESTOR [Concomitant]
     Route: 048
  9. MAGNESIUM OXIDE [Concomitant]
     Route: 048
  10. ALLOZYM [Concomitant]
     Route: 048

REACTIONS (2)
  - ABNORMAL BEHAVIOUR [None]
  - DELIRIUM [None]
